FAERS Safety Report 25903105 (Version 1)
Quarter: 2025Q4

REPORT INFORMATION
  Report Type: Spontaneous
  Country: US (occurrence: US)
  Receive Date: 20251009
  Receipt Date: 20251009
  Transmission Date: 20260118
  Serious: No
  Sender: PFIZER
  Company Number: US-PFIZER INC-PV202500119399

PATIENT
  Age: 74 Year
  Sex: Male

DRUGS (1)
  1. NURTEC ODT [Suspect]
     Active Substance: RIMEGEPANT SULFATE
     Indication: Migraine
     Dosage: 1 DF (DISSOLVE 1 TABLET ON TONGUE AS NEEDED)
     Route: 048

REACTIONS (1)
  - Therapeutic product effect incomplete [Unknown]
